FAERS Safety Report 14929116 (Version 1)
Quarter: 2018Q2

REPORT INFORMATION
  Report Type: Spontaneous
  Country: US (occurrence: US)
  Receive Date: 20180523
  Receipt Date: 20180523
  Transmission Date: 20180711
  Serious: No
  Sender: FDA-Public Use
  Company Number: US-DRREDDYS-USA/USA/17/0089020

PATIENT
  Sex: Male

DRUGS (4)
  1. ZENATANE [Suspect]
     Active Substance: ISOTRETINOIN
     Route: 048
  2. ZENATANE [Suspect]
     Active Substance: ISOTRETINOIN
     Dosage: 20 MG 2 IN THE MORNING AND 1 AT NIGHT
     Route: 048
     Dates: start: 20170413
  3. ZENATANE [Suspect]
     Active Substance: ISOTRETINOIN
     Indication: ACNE
     Route: 048
     Dates: start: 20161212
  4. ZENATANE [Suspect]
     Active Substance: ISOTRETINOIN
     Dosage: 20 MG 2 IN THE MORNING AND 1 AT NIGHT
     Route: 048
     Dates: start: 20170413

REACTIONS (3)
  - Incorrect dose administered [Unknown]
  - Treatment noncompliance [Unknown]
  - No adverse event [Unknown]
